FAERS Safety Report 7406437-0 (Version None)
Quarter: 2011Q2

REPORT INFORMATION
  Report Type: 
  Country: None (occurrence: None)
  Receive Date: 20110405
  Receipt Date: 20110405
  Transmission Date: 20111010
  Serious: Yes (Other)
  Sender: FDA-Public Use
  Company Number: None

PATIENT
  Age: 68 Year
  Sex: Male
  Weight: 101.6057 kg

DRUGS (1)
  1. NIACIN CR 500MG [Suspect]
     Indication: BLOOD CHOLESTEROL INCREASED
     Dosage: 500MG 1/DAY
     Dates: start: 20110215, end: 20110411

REACTIONS (1)
  - HAEMATOCHEZIA [None]
